FAERS Safety Report 8159233-3 (Version None)
Quarter: 2012Q1

REPORT INFORMATION
  Report Type: 
  Country: None (occurrence: None)
  Receive Date: 20120217
  Receipt Date: 20120207
  Transmission Date: 20120608
  Serious: Yes (Other)
  Sender: FDA-Public Use
  Company Number: DSJ-2012-02442

PATIENT
  Age: 69 Year
  Sex: Male

DRUGS (4)
  1. BENICAR [Suspect]
     Indication: HYPERTENSION
     Dosage: 40 MG (40 MG, 1 IN 1 D, PER ORAL
     Route: 048
     Dates: start: 20111201
  2. DOXAZOSIN MESYLATE [Concomitant]
  3. LATANOPROST/TIMOLOL, LATANOPROST [Concomitant]
  4. RANITIDINE HYDROCHLORIDE [Concomitant]

REACTIONS (1)
  - TOOTH EXTRACTION [None]
